FAERS Safety Report 19651237 (Version 1)
Quarter: 2021Q3

REPORT INFORMATION
  Report Type: Spontaneous
  Country: US (occurrence: US)
  Receive Date: 20210802
  Receipt Date: 20210802
  Transmission Date: 20211014
  Serious: No
  Sender: FDA-Public Use
  Company Number: None

PATIENT
  Age: 73 Year
  Sex: Male
  Weight: 92.08 kg

DRUGS (3)
  1. AZITHROMYCIN (AZITHROMYCIN 500MG/VIL INJ) [Suspect]
     Active Substance: AZITHROMYCIN
     Indication: PNEUMONIA
     Dates: start: 20210104, end: 20210106
  2. ONDANSETRON (ONDANSETRON HCL 2MG/ML (PF) INJ, SOLN) ? [Suspect]
     Active Substance: ONDANSETRON HYDROCHLORIDE
     Indication: VOMITING
     Dates: start: 20210107, end: 20210107
  3. ONDANSETRON (ONDANSETRON HCL 2MG/ML (PF) INJ, SOLN) ? [Suspect]
     Active Substance: ONDANSETRON HYDROCHLORIDE
     Indication: NAUSEA
     Dates: start: 20210107, end: 20210107

REACTIONS (13)
  - Ventricular tachycardia [None]
  - Electrocardiogram R on T phenomenon [None]
  - Mental status changes [None]
  - Torsade de pointes [None]
  - Cardiac arrest [None]
  - Pyrexia [None]
  - Procalcitonin increased [None]
  - Sepsis [None]
  - Myocardial ischaemia [None]
  - Pneumonia [None]
  - White blood cell count increased [None]
  - Influenza like illness [None]
  - Electrocardiogram QT prolonged [None]

NARRATIVE: CASE EVENT DATE: 20210112
